FAERS Safety Report 5931427-4 (Version None)
Quarter: 2008Q4

REPORT INFORMATION
  Report Type: 
  Country: None (occurrence: None)
  Receive Date: 20081027
  Receipt Date: 20081017
  Transmission Date: 20090506
  Serious: Yes (Hospitalization)
  Sender: FDA-Public Use
  Company Number: FR-AVENTIS-200813749FR

PATIENT
  Age: 74 Year
  Sex: Female

DRUGS (7)
  1. LASIX [Suspect]
     Route: 048
     Dates: start: 20080515, end: 20080525
  2. ARTOTEC [Suspect]
     Route: 048
     Dates: start: 20080501, end: 20080101
  3. ALDACTONE [Suspect]
     Route: 048
     Dates: start: 20080522, end: 20080525
  4. ENDOTELON                          /00811401/ [Concomitant]
     Indication: DRUG USE FOR UNKNOWN INDICATION
     Route: 048
  5. LEVOTHYROX [Concomitant]
     Indication: DRUG USE FOR UNKNOWN INDICATION
     Route: 048
  6. ATARAX [Concomitant]
     Indication: DRUG USE FOR UNKNOWN INDICATION
  7. AERIUS                             /01398501/ [Concomitant]
     Indication: DRUG USE FOR UNKNOWN INDICATION

REACTIONS (4)
  - HYPOALBUMINAEMIA [None]
  - HYPOPROTEINAEMIA [None]
  - NEPHROTIC SYNDROME [None]
  - PROTEINURIA [None]
